FAERS Safety Report 23420240 (Version 1)
Quarter: 2024Q1

REPORT INFORMATION
  Report Type: Spontaneous
  Country: GB (occurrence: GB)
  Receive Date: 20240119
  Receipt Date: 20240119
  Transmission Date: 20240409
  Serious: Yes (Hospitalization, Other)
  Sender: FDA-Public Use
  Company Number: GB-CELLTRION INC.-2024GB001143

PATIENT

DRUGS (3)
  1. ADALIMUMAB [Suspect]
     Active Substance: ADALIMUMAB\ISOPROPYL ALCOHOL
     Indication: Colitis ulcerative
     Dosage: 40MG EVERY 2 WEEKS; ;
     Dates: start: 20230914
  2. ALLOPURINOL [Concomitant]
     Active Substance: ALLOPURINOL
     Indication: Colitis ulcerative
     Dosage: UNK
     Dates: start: 20230914
  3. MERCAPTOPURINE [Concomitant]
     Active Substance: MERCAPTOPURINE
     Indication: Colitis ulcerative
     Dosage: UNK
     Dates: start: 20230915

REACTIONS (1)
  - Glaucoma [Recovering/Resolving]
